FAERS Safety Report 12932232 (Version 1)
Quarter: 2016Q4

REPORT INFORMATION
  Report Type: Spontaneous
  Country: FI (occurrence: FI)
  Receive Date: 20161111
  Receipt Date: 20161111
  Transmission Date: 20170207
  Serious: Yes (Congenital Anomaly)
  Sender: FDA-Public Use
  Company Number: FI-ALEMBIC PHARMACUETICALS LIMITED-2016SCAL000901

PATIENT

DRUGS (1)
  1. LAMOTRIGINE. [Suspect]
     Active Substance: LAMOTRIGINE
     Indication: PRODUCT USED FOR UNKNOWN INDICATION
     Dosage: UNK
     Route: 064

REACTIONS (2)
  - Developmental delay [Unknown]
  - Foetal exposure during pregnancy [Unknown]
